FAERS Safety Report 10448123 (Version 1)
Quarter: 2014Q3

REPORT INFORMATION
  Report Type: Spontaneous
  Country: US (occurrence: US)
  Receive Date: 20140911
  Receipt Date: 20140911
  Transmission Date: 20150326
  Serious: No
  Sender: FDA-Public Use
  Company Number: US-PFIZER INC-2014252757

PATIENT
  Age: 59 Year
  Sex: Female
  Weight: 85.26 kg

DRUGS (1)
  1. ZOLOFT [Suspect]
     Active Substance: SERTRALINE HYDROCHLORIDE
     Dosage: 50 MG, 3X/WEEK

REACTIONS (2)
  - Panic attack [Unknown]
  - Anxiety [Unknown]
